FAERS Safety Report 25056078 (Version 1)
Quarter: 2025Q1

REPORT INFORMATION
  Report Type: Spontaneous
  Country: US (occurrence: US)
  Receive Date: 20250309
  Receipt Date: 20250309
  Transmission Date: 20250409
  Serious: Yes (Other)
  Sender: PRINSTON PHARMACEUTICAL
  Company Number: US-PRINSTON PHARMACEUTICAL INC.-2025PRN00064

PATIENT
  Age: 76 Year
  Sex: Female

DRUGS (1)
  1. RISPERIDONE [Suspect]
     Active Substance: RISPERIDONE
     Indication: Agitation

REACTIONS (2)
  - Seizure like phenomena [Recovered/Resolved]
  - Hypoxia [Unknown]
